FAERS Safety Report 7083407-6 (Version None)
Quarter: 2010Q4

REPORT INFORMATION
  Report Type: 
  Country: None (occurrence: None)
  Receive Date: 20101104
  Receipt Date: 20101101
  Transmission Date: 20110411
  Serious: Yes (Hospitalization, Congenital Anomaly)
  Sender: FDA-Public Use
  Company Number: A0851847A

PATIENT
  Sex: Male
  Weight: 2.5 kg

DRUGS (9)
  1. PAXIL [Suspect]
     Indication: BIPOLAR DISORDER
     Dosage: 20MG PER DAY
     Dates: start: 20010529, end: 20021008
  2. TERBUTALINE SULFATE [Concomitant]
  3. CELEXA [Concomitant]
     Dates: end: 20010529
  4. PEN-VEE K [Concomitant]
     Dates: start: 20010529
  5. PRENATAL VITAMINS [Concomitant]
     Dates: start: 20010529
  6. CLINDAMYCIN [Concomitant]
     Dates: start: 20010610
  7. PENICILLIN [Concomitant]
     Dates: end: 20010702
  8. AMOXICILLIN [Concomitant]
     Dates: start: 20020101
  9. NITROFURANTOIN [Concomitant]
     Dates: start: 20010801

REACTIONS (15)
  - ASTHMA [None]
  - ATRIAL SEPTAL DEFECT [None]
  - BRACHYCEPHALY [None]
  - CARDIAC MURMUR [None]
  - COLOBOMA [None]
  - CONGENITAL AORTIC STENOSIS [None]
  - CONGENITAL TRACHEOMALACIA [None]
  - CRANIOSYNOSTOSIS [None]
  - DRUG EXPOSURE DURING PREGNANCY [None]
  - GASTROOESOPHAGEAL REFLUX DISEASE [None]
  - PATENT DUCTUS ARTERIOSUS [None]
  - PULMONARY VALVE STENOSIS [None]
  - SINGLE UMBILICAL ARTERY [None]
  - SPEECH DISORDER DEVELOPMENTAL [None]
  - UMBILICAL CORD SHORT [None]
